FAERS Safety Report 6586008-9 (Version None)
Quarter: 2010Q1

REPORT INFORMATION
  Report Type: 
  Country: None (occurrence: None)
  Receive Date: 20100217
  Receipt Date: 20050630
  Transmission Date: 20100710
  Serious: Yes (Other)
  Sender: FDA-Public Use
  Company Number: PHEH2005US07410

PATIENT
  Age: 65 Year
  Sex: Female

DRUGS (14)
  1. GLEEVEC [Suspect]
     Indication: CHRONIC MYELOID LEUKAEMIA
     Dosage: 400 MG, QD
     Route: 048
     Dates: start: 20050407, end: 20050428
  2. GLEEVEC [Suspect]
     Dosage: 400 MG, QD
     Route: 048
     Dates: start: 20050526
  3. COSOPT [Concomitant]
     Route: 047
  4. TRAVATAN [Concomitant]
     Route: 047
  5. ATROPINE [Concomitant]
     Route: 047
  6. ALPHAGAN [Concomitant]
     Route: 047
  7. DIAMOX - SLOW RELEASE [Concomitant]
     Route: 048
  8. GLUCOPHAGE [Concomitant]
     Route: 048
  9. GLUCOTROL [Concomitant]
     Route: 048
  10. SYNTHROID [Concomitant]
     Route: 048
  11. ATACAND [Concomitant]
     Route: 048
  12. PAXIL [Concomitant]
     Route: 048
  13. LANTUS [Concomitant]
  14. ULTRAM [Concomitant]
     Route: 048

REACTIONS (3)
  - GLAUCOMA [None]
  - IRIS NEOVASCULARISATION [None]
  - VISUAL IMPAIRMENT [None]
